FAERS Safety Report 8810687 (Version 1)
Quarter: 2012Q4

REPORT INFORMATION
  Report Type: Spontaneous
  Country: US (occurrence: None)
  Receive Date: 20120924
  Receipt Date: 20120924
  Transmission Date: 20130627
  Serious: Yes (Other)
  Sender: FDA-Public Use
  Company Number: None

PATIENT
  Age: 34 Year
  Sex: Male
  Weight: 70.31 kg

DRUGS (1)
  1. FINASTERIDE [Suspect]
     Indication: MALE PATTERN BALDNESS
     Route: 048
     Dates: start: 20000701, end: 20120515

REACTIONS (17)
  - Penile pain [None]
  - Confusional state [None]
  - Photophobia [None]
  - Dysarthria [None]
  - Speech disorder [None]
  - Memory impairment [None]
  - Muscle atrophy [None]
  - Muscle twitching [None]
  - Muscular weakness [None]
  - Diarrhoea [None]
  - Flatulence [None]
  - Dry eye [None]
  - Erection increased [None]
  - Ejaculation disorder [None]
  - Alopecia [None]
  - Sensory loss [None]
  - Penis disorder [None]
